FAERS Safety Report 8382761 (Version 2)
Quarter: 2012Q4

REPORT INFORMATION
  Report Type: 
  Country: US (occurrence: US)
  Receive Date: 20120201
  Receipt Date: 20121012
  Transmission Date: 20130627
  Serious: Yes (Other)
  Sender: FDA-Public Use
  Company Number: US-ROCHE-1035278

PATIENT
  Age: 21 Year
  Sex: Male

DRUGS (5)
  1. ACCUTANE [Suspect]
     Indication: ACNE
     Route: 048
     Dates: start: 19970501, end: 19980804
  2. ACCUTANE [Suspect]
     Route: 065
     Dates: start: 20010111
  3. ACCUTANE [Suspect]
     Route: 065
  4. ACCUTANE [Suspect]
     Route: 065
     Dates: start: 200001, end: 20000327
  5. AMOXICILLIN [Concomitant]
     Indication: ACNE
     Route: 065

REACTIONS (11)
  - Inflammatory bowel disease [Unknown]
  - Anxiety [Unknown]
  - Proctitis ulcerative [Unknown]
  - Colitis ulcerative [Unknown]
  - Anal fistula [Unknown]
  - Anal abscess [Unknown]
  - Paronychia [Unknown]
  - Hepatitis viral [Recovered/Resolved]
  - Upper respiratory tract infection [Unknown]
  - Sunburn [Unknown]
  - Cheilitis [Unknown]
